FAERS Safety Report 8916817 (Version 1)
Quarter: 2012Q4

REPORT INFORMATION
  Report Type: 
  Country: US (occurrence: US)
  Receive Date: 20121120
  Receipt Date: 20121120
  Transmission Date: 20130627
  Serious: Yes (Hospitalization, Other)
  Sender: FDA-Public Use
  Company Number: US-RANBAXY-2012US-62230

PATIENT
  Age: 55 Year
  Sex: Male

DRUGS (4)
  1. ATORVASTATIN [Suspect]
     Indication: HYPERLIPIDAEMIA
     Dosage: 40 mg, daily
     Route: 065
  2. ATORVASTATIN/AMLODIPINE [Suspect]
     Indication: HYPERLIPIDAEMIA
     Dosage: 40 mg/10 mg,daily
     Route: 065
     Dates: start: 2008
  3. ATORVASTATIN/AMLODIPINE [Suspect]
     Indication: HYPERTENSION
  4. PYRITHIONE ZINC [Concomitant]
     Indication: DANDRUFF
     Dosage: UNK
     Route: 061

REACTIONS (4)
  - Dermatomyositis [Recovered/Resolved]
  - Rhabdomyolysis [Recovered/Resolved]
  - Compartment syndrome [Recovered/Resolved]
  - Dandruff [Unknown]
